FAERS Safety Report 17212591 (Version 1)
Quarter: 2019Q4

REPORT INFORMATION
  Report Type: Spontaneous
  Country: CA (occurrence: CA)
  Receive Date: 20191230
  Receipt Date: 20191230
  Transmission Date: 20200122
  Serious: Yes (Other)
  Sender: FDA-Public Use
  Company Number: CA-TEVA-2019-CA-1158536

PATIENT
  Age: 51 Year
  Sex: Female

DRUGS (2)
  1. ESOMEPRAZOLE. [Suspect]
     Active Substance: ESOMEPRAZOLE MAGNESIUM
     Indication: IMPAIRED GASTRIC EMPTYING
     Dosage: 40 MILLIGRAM DAILY;
     Route: 048
  2. ESOMEPRAZOLE. [Suspect]
     Active Substance: ESOMEPRAZOLE MAGNESIUM
     Indication: GASTROOESOPHAGEAL REFLUX DISEASE

REACTIONS (7)
  - Pneumonia [Recovering/Resolving]
  - Thoracic vertebral fracture [Recovering/Resolving]
  - Ankle fracture [Recovering/Resolving]
  - Fall [Recovering/Resolving]
  - Malabsorption [Recovering/Resolving]
  - Osteopenia [Recovering/Resolving]
  - Vitamin B12 deficiency [Recovering/Resolving]
